FAERS Safety Report 9432835 (Version 1)
Quarter: 2013Q3

REPORT INFORMATION
  Report Type: Spontaneous
  Country: KR (occurrence: KR)
  Receive Date: 20130731
  Receipt Date: 20130731
  Transmission Date: 20140515
  Serious: Yes (Other)
  Sender: FDA-Public Use
  Company Number: KR-BAYER-2013-089589

PATIENT
  Age: 52 Year
  Sex: Male

DRUGS (4)
  1. ACETYLSALICYLIC ACID({=100 MG) [Suspect]
     Indication: EMBOLISM
     Dosage: 100 MG, UNK
  2. ATORVASTATIN [Concomitant]
     Dosage: 40 MG, UNK
  3. AMLODIPINE [Concomitant]
     Indication: HYPERTENSION
  4. LOSARTAN [Concomitant]
     Indication: HYPERTENSION

REACTIONS (2)
  - Blindness transient [Recovering/Resolving]
  - Drug resistance [None]
